FAERS Safety Report 10594453 (Version 1)
Quarter: 2014Q4

REPORT INFORMATION
  Report Type: Spontaneous
  Country: ES (occurrence: ES)
  Receive Date: 20141119
  Receipt Date: 20141119
  Transmission Date: 20150529
  Serious: Yes (Hospitalization, Other)
  Sender: FDA-Public Use
  Company Number: ES-MYLANLABS-2014M1010461

PATIENT

DRUGS (2)
  1. PANTOPRAZOLE SODIUM [Suspect]
     Active Substance: PANTOPRAZOLE SODIUM
     Indication: PRODUCT USED FOR UNKNOWN INDICATION
     Dosage: UNK
     Route: 048
     Dates: start: 2009
  2. CHAMPIX [Suspect]
     Active Substance: VARENICLINE TARTRATE
     Indication: SELF-MEDICATION
     Dosage: 0.5 MG, QD (0.5 MG, 1X/DAY)
     Route: 048
     Dates: start: 20140808, end: 20140815

REACTIONS (7)
  - Intentional product misuse [Unknown]
  - Diarrhoea [Recovered/Resolved]
  - Hypokalaemia [Unknown]
  - Prerenal failure [Recovered/Resolved]
  - Hypocalcaemia [Unknown]
  - Hypomagnesaemia [Unknown]
  - Vomiting [Unknown]

NARRATIVE: CASE EVENT DATE: 20140729
